FAERS Safety Report 11467316 (Version 1)
Quarter: 2015Q3

REPORT INFORMATION
  Report Type: Report from Study
  Country: US (occurrence: US)
  Receive Date: 20150908
  Receipt Date: 20150908
  Transmission Date: 20151125
  Serious: No
  Sender: FDA-Public Use
  Company Number: PHEH2014US013355

PATIENT
  Sex: Female
  Weight: 60.77 kg

DRUGS (1)
  1. GILENYA [Suspect]
     Active Substance: FINGOLIMOD HYDROCHLORIDE
     Indication: MULTIPLE SCLEROSIS
     Dosage: 0.5 MG, QD
     Route: 048
     Dates: start: 20140404

REACTIONS (4)
  - Skin abrasion [Unknown]
  - Breast pain [Recovering/Resolving]
  - Amnesia [Not Recovered/Not Resolved]
  - Fall [Recovered/Resolved]
